FAERS Safety Report 9640348 (Version 2)
Quarter: 2013Q4

REPORT INFORMATION
  Report Type: Spontaneous
  Country: US (occurrence: US)
  Receive Date: 20131023
  Receipt Date: 20131029
  Transmission Date: 20140711
  Serious: Yes (Other)
  Sender: FDA-Public Use
  Company Number: US-UCBSA-100919

PATIENT
  Age: 39 Year
  Sex: Female

DRUGS (7)
  1. VIMPAT [Suspect]
     Indication: CONVULSION
     Dates: start: 20110804
  2. VIMPAT [Suspect]
     Indication: CONVULSION
     Dates: start: 20111114
  3. FOLIC ACID [Concomitant]
  4. TRIPLEPTAL [Concomitant]
     Dosage: 600MG THRICE DAILY WITH 300MG AT BED TIME(HS)
  5. TOPOMAX [Concomitant]
     Dosage: 200MG ONCE MORNING, ONCE MIDDAY WITH 400MG AT BEDTIME
  6. PAXIL [Concomitant]
     Indication: ANXIETY
  7. GLUCOPHAGE [Concomitant]

REACTIONS (3)
  - Atrial fibrillation [Recovered/Resolved]
  - Dehydration [Unknown]
  - Atrial flutter [Recovered/Resolved]
